FAERS Safety Report 15987159 (Version 5)
Quarter: 2020Q1

REPORT INFORMATION
  Report Type: Spontaneous
  Country: US (occurrence: US)
  Receive Date: 20190220
  Receipt Date: 20200130
  Transmission Date: 20200409
  Serious: Yes (Other)
  Sender: FDA-Public Use
  Company Number: US-ASTRAZENECA-2019SE11733

PATIENT
  Age: 15795 Day
  Sex: Male

DRUGS (24)
  1. ALLOPURINOL. [Concomitant]
     Active Substance: ALLOPURINOL
  2. LOSARTAN. [Concomitant]
     Active Substance: LOSARTAN
  3. CHANTIX [Concomitant]
     Active Substance: VARENICLINE TARTRATE
     Route: 048
  4. SPIRONOLACTONE. [Concomitant]
     Active Substance: SPIRONOLACTONE
  5. KLOR-CON [Concomitant]
     Active Substance: POTASSIUM CHLORIDE
     Route: 048
  6. NEXIUM [Suspect]
     Active Substance: ESOMEPRAZOLE MAGNESIUM
     Indication: GASTROOESOPHAGEAL REFLUX DISEASE
     Route: 048
  7. NEXIUM [Suspect]
     Active Substance: ESOMEPRAZOLE MAGNESIUM
     Indication: GASTROOESOPHAGEAL REFLUX DISEASE
     Route: 048
     Dates: start: 20000101, end: 20130101
  8. CYCLOBENZAPRINE. [Concomitant]
     Active Substance: CYCLOBENZAPRINE
  9. IBUPROFEN. [Concomitant]
     Active Substance: IBUPROFEN
  10. ONDANSETRON [Concomitant]
     Active Substance: ONDANSETRON
  11. NEXIUM [Suspect]
     Active Substance: ESOMEPRAZOLE MAGNESIUM
     Indication: GASTROOESOPHAGEAL REFLUX DISEASE
     Route: 048
     Dates: start: 20000101, end: 20121231
  12. PRILOSEC [Suspect]
     Active Substance: OMEPRAZOLE MAGNESIUM
     Indication: GASTROOESOPHAGEAL REFLUX DISEASE
     Dosage: 20-40 MG DAILY
     Route: 048
     Dates: start: 20130101, end: 20161231
  13. HYDROCHLOROTHIAZIDE. [Concomitant]
     Active Substance: HYDROCHLOROTHIAZIDE
  14. TOPROL XL [Concomitant]
     Active Substance: METOPROLOL SUCCINATE
     Route: 048
  15. PRILOSEC [Suspect]
     Active Substance: OMEPRAZOLE MAGNESIUM
     Indication: GASTROOESOPHAGEAL REFLUX DISEASE
     Route: 048
  16. VIAGRA [Concomitant]
     Active Substance: SILDENAFIL CITRATE
  17. BUPROPION. [Concomitant]
     Active Substance: BUPROPION
  18. NIFEDIPINE. [Concomitant]
     Active Substance: NIFEDIPINE
  19. PREDNISONE. [Concomitant]
     Active Substance: PREDNISONE
  20. ATORVASTATIN [Concomitant]
     Active Substance: ATORVASTATIN
  21. GLUCOPHAGE [Concomitant]
     Active Substance: METFORMIN HYDROCHLORIDE
     Route: 048
  22. OXYCODONE [Concomitant]
     Active Substance: OXYCODONE
  23. LISINOPRIL. [Concomitant]
     Active Substance: LISINOPRIL
  24. EFFEXOR [Concomitant]
     Active Substance: VENLAFAXINE HYDROCHLORIDE

REACTIONS (4)
  - Acute kidney injury [Unknown]
  - Renal injury [Unknown]
  - Nephrogenic anaemia [Unknown]
  - Chronic kidney disease [Not Recovered/Not Resolved]

NARRATIVE: CASE EVENT DATE: 20151022
